FAERS Safety Report 8473439-5 (Version None)
Quarter: 2012Q2

REPORT INFORMATION
  Report Type: 
  Country: None (occurrence: None)
  Receive Date: 20120628
  Receipt Date: 20120619
  Transmission Date: 20120825
  Serious: Yes (Hospitalization, Other)
  Sender: FDA-Public Use
  Company Number: ZA-ELI_LILLY_AND_COMPANY-ZA201206006518

PATIENT
  Sex: Female
  Weight: 92 kg

DRUGS (4)
  1. PHARMAPRESS [Concomitant]
     Indication: HYPERTENSION
     Dosage: 20 MG, QD
     Route: 048
  2. HUMALOG [Suspect]
     Indication: DIABETES MELLITUS
     Dosage: 16 U, BID
     Route: 058
  3. HUMALOG [Suspect]
     Dosage: 18 U, EACH EVENING
     Route: 058
  4. ADCO-SIMVASTATIN [Concomitant]
     Indication: BLOOD CHOLESTEROL INCREASED
     Dosage: 40 MG, QD
     Route: 048

REACTIONS (2)
  - PANCREATITIS [None]
  - HYPERGLYCAEMIA [None]
